FAERS Safety Report 23982940 (Version 2)
Quarter: 2025Q4

REPORT INFORMATION
  Report Type: Spontaneous
  Country: US (occurrence: US)
  Receive Date: 20240617
  Receipt Date: 20251217
  Transmission Date: 20260118
  Serious: Yes (Other)
  Sender: COOPERSURGICAL
  Company Number: US-COOPERSURGICAL, INC.-2024CPS001676

PATIENT
  Age: 27 Year
  Sex: Female
  Weight: 72.562 kg

DRUGS (1)
  1. PARAGARD T 380A [Suspect]
     Active Substance: COPPER
     Indication: Contraception
     Dosage: UNK
     Route: 015
     Dates: start: 20120323

REACTIONS (11)
  - Reproductive complication associated with device [Unknown]
  - Infertility female [Unknown]
  - Device breakage [Recovered/Resolved]
  - Foreign body in reproductive tract [Recovered/Resolved]
  - Complication of device removal [Recovered/Resolved]
  - Anxiety [Unknown]
  - Emotional distress [Unknown]
  - Endometriosis [Unknown]
  - Pain [Unknown]
  - Heavy menstrual bleeding [Unknown]
  - Back pain [Unknown]

NARRATIVE: CASE EVENT DATE: 20120301
